FAERS Safety Report 20429718 (Version 1)
Quarter: 2022Q1

REPORT INFORMATION
  Report Type: Spontaneous
  Country: US (occurrence: US)
  Receive Date: 20220204
  Receipt Date: 20220204
  Transmission Date: 20220423
  Serious: Yes (Hospitalization)
  Sender: FDA-Public Use
  Company Number: US-RECORDATI-2022000304

PATIENT
  Age: 19 Year
  Sex: Female
  Weight: 57.7 kg

DRUGS (4)
  1. DACTINOMYCIN [Suspect]
     Active Substance: DACTINOMYCIN
     Indication: Embryonal rhabdomyosarcoma
     Dosage: 0.05 MILLIGRAM/KILOGRAM OVER 1-5 MINUTES ON D1 OF C1
     Route: 042
     Dates: start: 20200423, end: 20200423
  2. TEMSIROLIMUS [Suspect]
     Active Substance: TEMSIROLIMUS
     Indication: Embryonal rhabdomyosarcoma
     Dosage: 15 MILLIGRAM/SQ. METER OVER 30-60 MINUTES ON DAYS 1 OF C1
     Route: 042
     Dates: start: 20200423, end: 20200423
  3. VINCRISTINE SULFATE [Suspect]
     Active Substance: VINCRISTINE SULFATE
     Indication: Embryonal rhabdomyosarcoma
     Dosage: 1.5 MILLIGRAM/SQ. METER OVER 1 MINUTE OR INFUSION VIA MINIBAG ON D1 OF C1
     Route: 042
     Dates: start: 20200423, end: 20200423
  4. CYCLOPHOSPHAMIDE [Suspect]
     Active Substance: CYCLOPHOSPHAMIDE
     Indication: Embryonal rhabdomyosarcoma
     Dosage: 1200 MILLIGRAM OVER 60 MINUTES ON D 1 OF C 1
     Route: 042
     Dates: start: 20200423, end: 20200423

REACTIONS (2)
  - Pain [Unknown]
  - Stomatitis [Unknown]

NARRATIVE: CASE EVENT DATE: 20200429
